FAERS Safety Report 9798764 (Version 2)
Quarter: 2014Q1

REPORT INFORMATION
  Report Type: Spontaneous
  Country: US (occurrence: US)
  Receive Date: 20140106
  Receipt Date: 20140106
  Transmission Date: 20141002
  Serious: No
  Sender: FDA-Public Use
  Company Number: US-GILEAD-2010-0029748

PATIENT
  Sex: Female

DRUGS (18)
  1. LETAIRIS [Suspect]
     Indication: PULMONARY ARTERIAL HYPERTENSION
     Route: 048
     Dates: start: 20100607
  2. SERTRALINE [Concomitant]
  3. REVATIO [Concomitant]
  4. TORSEMIDE [Concomitant]
  5. NOVOLIN R [Concomitant]
  6. ADVAIR [Concomitant]
  7. ALLOPURINOL [Concomitant]
  8. OMEPRAZOLE [Concomitant]
  9. CLONAZEPAM [Concomitant]
  10. ASPIRIN [Concomitant]
  11. LANTUS [Concomitant]
  12. FLOVENT [Concomitant]
  13. HYDROCODONE/ APAP [Concomitant]
  14. FOSINOPRIL [Concomitant]
  15. METFORMIN [Concomitant]
  16. VYTORIN [Concomitant]
  17. POTASSIUM [Concomitant]
  18. MAGNESIUM [Concomitant]

REACTIONS (2)
  - Fluid retention [Not Recovered/Not Resolved]
  - Oedema peripheral [Recovering/Resolving]
